FAERS Safety Report 5391426-0 (Version None)
Quarter: 2007Q3

REPORT INFORMATION
  Report Type: 
  Country: None (occurrence: None)
  Receive Date: 20070719
  Receipt Date: 20070704
  Transmission Date: 20080115
  Serious: Yes (Other)
  Sender: FDA-Public Use
  Company Number: BR-ROCHE-474108

PATIENT

DRUGS (1)
  1. ISOTRETINOIN [Suspect]
     Indication: ACNE
     Dates: start: 20060501, end: 20061101

REACTIONS (2)
  - NO ADVERSE REACTION [None]
  - NORMAL NEWBORN [None]
